FAERS Safety Report 9397405 (Version 1)
Quarter: 2013Q3

REPORT INFORMATION
  Report Type: Spontaneous
  Country: US (occurrence: None)
  Receive Date: 20130711
  Receipt Date: 20130711
  Transmission Date: 20140515
  Serious: No
  Sender: FDA-Public Use
  Company Number: None

PATIENT
  Age: 14 Year
  Sex: 0

DRUGS (1)
  1. HUMIRA PEN 40MG ABBOTT [Suspect]
     Dosage: Q 2 WKS
     Route: 058
     Dates: start: 20130424

REACTIONS (1)
  - Erythema [None]
